FAERS Safety Report 8102046-9 (Version None)
Quarter: 2012Q1

REPORT INFORMATION
  Report Type: 
  Country: None (occurrence: None)
  Receive Date: 20120131
  Receipt Date: 20120123
  Transmission Date: 20120608
  Serious: Yes (Other)
  Sender: FDA-Public Use
  Company Number: US-ASTRAZENECA-2012SE04879

PATIENT
  Sex: Male

DRUGS (2)
  1. CRESTOR [Suspect]
     Route: 048
  2. GLEEVEC [Concomitant]

REACTIONS (1)
  - CHRONIC MYELOID LEUKAEMIA [None]
